FAERS Safety Report 8904084 (Version 1)
Quarter: 2012Q4

REPORT INFORMATION
  Report Type: 
  Country: US (occurrence: US)
  Receive Date: 20121112
  Receipt Date: 20121112
  Transmission Date: 20130627
  Serious: No
  Sender: FDA-Public Use
  Company Number: US-COVIDIEN/TYCO HEALTHCARE/MALLINCKRODT-T201203675

PATIENT
  Age: 53 Year
  Sex: Male

DRUGS (5)
  1. XANAX [Concomitant]
     Indication: DEPRESSION
     Dosage: UNK, q8 hours
     Route: 048
  2. OXYCONTIN [Concomitant]
     Indication: BACK PAIN
     Dosage: UNK
     Route: 048
  3. PERCOCET                           /00446701/ [Concomitant]
     Indication: BACK PAIN
     Dosage: UNK
     Route: 048
  4. EXALGO [Concomitant]
     Indication: BACK PAIN
     Dosage: 8 mg
     Route: 048
     Dates: start: 20121003, end: 20121007
  5. FENTANYL TRANSDERMAL SYSTEM [Suspect]
     Indication: BACK PAIN
     Dosage: UNK
     Route: 062
     Dates: start: 20121010, end: 20121010

REACTIONS (2)
  - Irritability [Recovered/Resolved]
  - Feeling of body temperature change [Recovered/Resolved]
